FAERS Safety Report 15670090 (Version 2)
Quarter: 2019Q4

REPORT INFORMATION
  Report Type: Spontaneous
  Country: US (occurrence: US)
  Receive Date: 20181129
  Receipt Date: 20191011
  Transmission Date: 20200122
  Serious: Yes (Other)
  Sender: FDA-Public Use
  Company Number: US-TEVA-2018-US-981620

PATIENT
  Sex: Female

DRUGS (6)
  1. PROVIGIL [Suspect]
     Active Substance: MODAFINIL
     Indication: CONFUSIONAL STATE
  2. LYRICA [Concomitant]
     Active Substance: PREGABALIN
  3. PROVIGIL [Suspect]
     Active Substance: MODAFINIL
     Indication: FATIGUE
     Route: 065
     Dates: start: 1998, end: 2013
  4. NUNEC [Concomitant]
     Dosage: 30 MILLIGRAM DAILY;
     Route: 065
  5. PROTOIN [Concomitant]
  6. PREDNISOLON [Concomitant]
     Active Substance: PREDNISOLONE

REACTIONS (1)
  - Sleep apnoea syndrome [Unknown]
